FAERS Safety Report 21329726 (Version 2)
Quarter: 2022Q3

REPORT INFORMATION
  Report Type: Spontaneous
  Country: RS (occurrence: RS)
  Receive Date: 20220913
  Receipt Date: 20220919
  Transmission Date: 20221027
  Serious: Yes (Other)
  Sender: FDA-Public Use
  Company Number: RS-002147023-NVSC2022RS201295

PATIENT

DRUGS (3)
  1. RUXOLITINIB [Suspect]
     Active Substance: RUXOLITINIB
     Indication: Primary myelofibrosis
     Dosage: 20 MG, BID
     Route: 065
     Dates: start: 202012, end: 202205
  2. RUXOLITINIB [Suspect]
     Active Substance: RUXOLITINIB
     Dosage: 10 MG, BID
     Route: 065
     Dates: start: 202105
  3. RUXOLITINIB [Suspect]
     Active Substance: RUXOLITINIB
     Dosage: 10 MG, BID
     Route: 065
     Dates: start: 202111

REACTIONS (6)
  - COVID-19 pneumonia [Not Recovered/Not Resolved]
  - White blood cell count increased [Unknown]
  - Platelet count decreased [Not Recovered/Not Resolved]
  - Haemoglobin decreased [Recovering/Resolving]
  - Splenomegaly [Unknown]
  - Condition aggravated [Unknown]

NARRATIVE: CASE EVENT DATE: 20210101
